FAERS Safety Report 13002138 (Version 1)
Quarter: 2016Q4

REPORT INFORMATION
  Report Type: Report from Study
  Country: US (occurrence: US)
  Receive Date: 20161206
  Receipt Date: 20161206
  Transmission Date: 20170207
  Serious: Yes (Other)
  Sender: FDA-Public Use
  Company Number: US-AMGEN-USASL2016168908

PATIENT
  Sex: Female

DRUGS (1)
  1. REPATHA [Suspect]
     Active Substance: EVOLOCUMAB
     Indication: PRODUCT USED FOR UNKNOWN INDICATION
     Dosage: UNK
     Route: 065
     Dates: start: 20161021

REACTIONS (9)
  - Dizziness [Unknown]
  - Nasal congestion [Unknown]
  - Headache [Unknown]
  - Asthenia [Unknown]
  - Upper-airway cough syndrome [Unknown]
  - Neck pain [Unknown]
  - Asthma [Unknown]
  - Abdominal pain upper [Unknown]
  - Musculoskeletal pain [Unknown]
